FAERS Safety Report 15107972 (Version 1)
Quarter: 2018Q3

REPORT INFORMATION
  Report Type: Spontaneous
  Country: US (occurrence: US)
  Receive Date: 20180704
  Receipt Date: 20180704
  Transmission Date: 20181010
  Serious: No
  Sender: FDA-Public Use
  Company Number: US-009507513-1807USA000933

PATIENT
  Age: 49 Year
  Sex: Female

DRUGS (5)
  1. DULERA [Suspect]
     Active Substance: FORMOTEROL FUMARATE DIHYDRATE\MOMETASONE FUROATE
     Indication: ASTHMA
     Route: 055
  2. LEVOTHYROXINE SODIUM. [Concomitant]
     Active Substance: LEVOTHYROXINE SODIUM
  3. PRILOSEC [Concomitant]
     Active Substance: OMEPRAZOLE MAGNESIUM
  4. FLONASE [Concomitant]
     Active Substance: FLUTICASONE PROPIONATE
  5. ALVESCO [Concomitant]
     Active Substance: CICLESONIDE

REACTIONS (2)
  - Dysphonia [Not Recovered/Not Resolved]
  - Laryngitis [Not Recovered/Not Resolved]
